FAERS Safety Report 18320085 (Version 1)
Quarter: 2020Q3

REPORT INFORMATION
  Report Type: Spontaneous
  Country: JP (occurrence: JP)
  Receive Date: 20200928
  Receipt Date: 20200928
  Transmission Date: 20201103
  Serious: Yes (Hospitalization, Disabling, Other)
  Sender: FDA-Public Use
  Company Number: PHHY2012JP139753

PATIENT
  Age: 80 Year
  Sex: Female

DRUGS (1)
  1. ELTROMBOPAG [Suspect]
     Active Substance: ELTROMBOPAG
     Indication: IMMUNE THROMBOCYTOPENIA
     Dosage: 37.5 MG, QD
     Route: 048
     Dates: end: 20120809

REACTIONS (8)
  - Platelet count decreased [Unknown]
  - Paresis [Unknown]
  - Dementia [Unknown]
  - Cerebral haemorrhage [Recovered/Resolved with Sequelae]
  - Cerebral infarction [Recovered/Resolved with Sequelae]
  - Visual impairment [Unknown]
  - Cerebral infarction [Unknown]
  - Blindness [Unknown]

NARRATIVE: CASE EVENT DATE: 2012
